FAERS Safety Report 10488159 (Version 2)
Quarter: 2016Q2

REPORT INFORMATION
  Report Type: Report from Study
  Country: US (occurrence: US)
  Receive Date: 20141002
  Receipt Date: 20160607
  Transmission Date: 20160815
  Serious: Yes (Other)
  Sender: FDA-Public Use
  Company Number: US-ROCHE-1467661

PATIENT
  Sex: Male
  Weight: 37.5 kg

DRUGS (8)
  1. LEVOTHYROXINE. [Concomitant]
     Active Substance: LEVOTHYROXINE
     Route: 048
  2. NUTROPIN AQ [Suspect]
     Active Substance: SOMATROPIN
     Indication: DWARFISM
     Route: 058
  3. OMEGA 3 FATTY ACIDS [Concomitant]
     Active Substance: OMEGA-3 FATTY ACIDS
  4. VYVANSE [Concomitant]
     Active Substance: LISDEXAMFETAMINE DIMESYLATE
     Route: 048
  5. LEVOTHYROXINE. [Concomitant]
     Active Substance: LEVOTHYROXINE
     Route: 048
  6. LEVOTHYROXINE. [Concomitant]
     Active Substance: LEVOTHYROXINE
     Route: 047
  7. NUTROPIN AQ [Suspect]
     Active Substance: SOMATROPIN
     Indication: GROWTH HORMONE DEFICIENCY
     Route: 058
  8. INSULIN [Concomitant]
     Active Substance: INSULIN NOS
     Dosage: 29G X 8 MM
     Route: 065

REACTIONS (15)
  - Melanocytic naevus [Unknown]
  - Scar [Unknown]
  - Skin lesion [Unknown]
  - Weight increased [Unknown]
  - Gynaecomastia [Unknown]
  - Joint range of motion decreased [Unknown]
  - Basal cell carcinoma [Unknown]
  - Scoliosis [Unknown]
  - Spinal deformity [Unknown]
  - Adipomastia [Unknown]
  - Growth retardation [Unknown]
  - Hyperacusis [Unknown]
  - Gait disturbance [Unknown]
  - Deafness unilateral [Unknown]
  - Spinal X-ray abnormal [Unknown]
